FAERS Safety Report 24593259 (Version 1)
Quarter: 2024Q4

REPORT INFORMATION
  Report Type: Spontaneous
  Country: TR (occurrence: TR)
  Receive Date: 20241108
  Receipt Date: 20241108
  Transmission Date: 20250114
  Serious: Yes (Hospitalization)
  Sender: SANDOZ
  Company Number: TR-MLMSERVICE-20241025-PI240962-00336-1

PATIENT
  Age: 74 Year
  Sex: Female

DRUGS (3)
  1. ZOLEDRONIC ACID [Suspect]
     Active Substance: ZOLEDRONIC ACID
     Indication: Osteoporosis postmenopausal
     Dosage: 5 MG
     Route: 042
     Dates: start: 20230310
  2. SODIUM CHLORIDE [Concomitant]
     Active Substance: SODIUM CHLORIDE
     Indication: Product used for unknown indication
     Dosage: 100 ML
     Route: 042
     Dates: start: 20230310
  3. PREDNISOLONE [Concomitant]
     Active Substance: PREDNISOLONE
     Indication: Spondyloarthropathy
     Dosage: 2.5 MG
     Route: 065
     Dates: start: 202110

REACTIONS (3)
  - Pancreatitis acute [Recovering/Resolving]
  - Myalgia [Recovering/Resolving]
  - Arthralgia [Recovering/Resolving]

NARRATIVE: CASE EVENT DATE: 20230313
